FAERS Safety Report 12304784 (Version 1)
Quarter: 2016Q2

REPORT INFORMATION
  Report Type: Spontaneous
  Country: US (occurrence: US)
  Receive Date: 20160426
  Receipt Date: 20160426
  Transmission Date: 20160815
  Serious: No
  Sender: FDA-Public Use
  Company Number: PHEH2016US009807

PATIENT
  Sex: Male
  Weight: 63 kg

DRUGS (6)
  1. PROPRANOL [Concomitant]
     Active Substance: PROPRANOLOL HYDROCHLORIDE
     Indication: BLOOD PRESSURE INADEQUATELY CONTROLLED
     Route: 065
  2. MORPHINE [Concomitant]
     Active Substance: MORPHINE
     Indication: BACK PAIN
     Dosage: UNK
     Route: 065
  3. VALSARTAN. [Suspect]
     Active Substance: VALSARTAN
     Indication: BLOOD PRESSURE INCREASED
     Dosage: 160 MG, QD
     Route: 048
     Dates: start: 201603
  4. PROPRANOLOL [Concomitant]
     Active Substance: PROPRANOLOL\PROPRANOLOL HYDROCHLORIDE
     Indication: BLOOD PRESSURE INADEQUATELY CONTROLLED
     Dosage: UNK
     Route: 065
  5. BUMETANIDE. [Concomitant]
     Active Substance: BUMETANIDE
     Indication: JOINT SWELLING
     Route: 065
  6. AMLODIPINE [Concomitant]
     Active Substance: AMLODIPINE BESYLATE
     Indication: PRODUCT USED FOR UNKNOWN INDICATION
     Route: 065

REACTIONS (26)
  - Palpitations [Recovering/Resolving]
  - Euphoric mood [Recovering/Resolving]
  - Renal injury [Recovering/Resolving]
  - Neuropathy peripheral [Recovering/Resolving]
  - Feeling abnormal [Recovering/Resolving]
  - Dyspnoea [Recovering/Resolving]
  - Breath sounds abnormal [Recovering/Resolving]
  - Hypoaesthesia [Recovering/Resolving]
  - Cough [Recovering/Resolving]
  - Insomnia [Recovering/Resolving]
  - Skin striae [Recovering/Resolving]
  - Pruritus [Recovering/Resolving]
  - Dizziness [Recovering/Resolving]
  - Chest pain [Recovering/Resolving]
  - Dry mouth [Recovering/Resolving]
  - Breath odour [Recovering/Resolving]
  - Flatulence [Recovering/Resolving]
  - Local swelling [Recovering/Resolving]
  - Eye pain [Recovering/Resolving]
  - Throat irritation [Recovering/Resolving]
  - Pharyngeal oedema [Recovering/Resolving]
  - Arthralgia [Recovering/Resolving]
  - Tenderness [Recovering/Resolving]
  - Contusion [Recovering/Resolving]
  - Abdominal tenderness [Recovering/Resolving]
  - Gastrointestinal pain [Recovering/Resolving]
